FAERS Safety Report 5532720-X (Version None)
Quarter: 2007Q4

REPORT INFORMATION
  Report Type: 
  Country: None (occurrence: None)
  Receive Date: 20071128
  Receipt Date: 20071116
  Transmission Date: 20080405
  Serious: Yes (Other)
  Sender: FDA-Public Use
  Company Number: CHPA2007US12472

PATIENT
  Age: 81 Year
  Sex: Female
  Weight: 61.7 kg

DRUGS (1)
  1. BENEFIBER FIBER SUPLEMENT SUGAR FREE (NCH)(GUAR GUM) POWDER [Suspect]
     Indication: BOWEL MOVEMENT IRREGULARITY
     Dosage: ORAL
     Route: 048
     Dates: start: 20061101

REACTIONS (1)
  - WEIGHT DECREASED [None]
